FAERS Safety Report 24262895 (Version 1)
Quarter: 2024Q3

REPORT INFORMATION
  Report Type: Spontaneous
  Country: CA (occurrence: CA)
  Receive Date: 20240829
  Receipt Date: 20240829
  Transmission Date: 20241017
  Serious: Yes (Other)
  Sender: PHARMACOSMOS
  Company Number: None

PATIENT
  Age: 41 Year
  Sex: Female
  Weight: 72 kg

DRUGS (1)
  1. MONOFERRIC [Suspect]
     Active Substance: FERRIC DERISOMALTOSE
     Indication: Iron deficiency anaemia

REACTIONS (5)
  - Abdominal discomfort [Unknown]
  - Gingival discomfort [Unknown]
  - Burning sensation [Unknown]
  - Dyspnoea [Unknown]
  - Chest discomfort [Unknown]
